FAERS Safety Report 10103518 (Version 1)
Quarter: 2014Q2

REPORT INFORMATION
  Report Type: Spontaneous
  Country: AR (occurrence: AR)
  Receive Date: 20140424
  Receipt Date: 20140424
  Transmission Date: 20141212
  Serious: Yes (Hospitalization)
  Sender: FDA-Public Use
  Company Number: AR-PFIZER INC-2014111223

PATIENT
  Age: 70 Year
  Sex: Male

DRUGS (1)
  1. INLYTA [Suspect]
     Indication: RENAL CANCER
     Dosage: 5 MG, 1X/DAY

REACTIONS (3)
  - Malaise [Not Recovered/Not Resolved]
  - Disease progression [Not Recovered/Not Resolved]
  - Renal cancer [Not Recovered/Not Resolved]
